FAERS Safety Report 5902333-6 (Version None)
Quarter: 2008Q3

REPORT INFORMATION
  Report Type: 
  Country: None (occurrence: None)
  Receive Date: 20080929
  Receipt Date: 20080912
  Transmission Date: 20090109
  Serious: No
  Sender: FDA-Public Use
  Company Number: US-B.I. PHARMACEUTICALS,INC./RIDGEFIELD-2008-BP-14566BP

PATIENT
  Age: 41 Year
  Sex: Male

DRUGS (2)
  1. ZANTAC 150 [Suspect]
     Indication: GASTROOESOPHAGEAL REFLUX DISEASE
     Dosage: 150MG
     Route: 048
     Dates: start: 20080829
  2. IBUPROFEN [Concomitant]
     Indication: BACK DISORDER

REACTIONS (1)
  - RASH [None]
